FAERS Safety Report 8018717-9 (Version None)
Quarter: 2012Q1

REPORT INFORMATION
  Report Type: 
  Country: None (occurrence: None)
  Receive Date: 20120103
  Receipt Date: 20120103
  Transmission Date: 20120608
  Serious: Yes (Other)
  Sender: FDA-Public Use
  Company Number: None

PATIENT
  Sex: Female
  Weight: 63.956 kg

DRUGS (1)
  1. MONISTAT [Suspect]
     Indication: FUNGAL INFECTION
     Dosage: 1 OVULE
     Route: 067
     Dates: start: 20110101, end: 20110101

REACTIONS (2)
  - APPLICATION SITE PAIN [None]
  - APPLICATION SITE PRURITUS [None]
